FAERS Safety Report 4538600-0 (Version None)
Quarter: 2004Q4

REPORT INFORMATION
  Report Type: 
  Country: None (occurrence: None)
  Receive Date: 20041222
  Receipt Date: 20041210
  Transmission Date: 20050328
  Serious: Yes (Hospitalization)
  Sender: FDA-Public Use
  Company Number: HQWYE943613DEC04

PATIENT
  Age: 76 Year
  Sex: Male

DRUGS (5)
  1. EFEXOR ER      (VENLAFAXINE HYDROCHLORIDE, EXTENDED RELEASE) [Suspect]
     Dosage: 75 MG 1X PER 1 DAY ORAL
     Route: 048
     Dates: end: 20041114
  2. ARTHROTEC [Suspect]
     Dosage: 75 MG/0.2 MG DAILY ORAL
     Route: 048
     Dates: end: 20041114
  3. DIGOXIN [Concomitant]
  4. CALCIMAGON (CALCIUM CARBONATE/COLECALCIFEROL) [Concomitant]
  5. LORAZEPAM [Concomitant]

REACTIONS (4)
  - CEREBRAL HAEMORRHAGE [None]
  - FALL [None]
  - HEAD INJURY [None]
  - HEMIPARESIS [None]
